FAERS Safety Report 5357317-6 (Version None)
Quarter: 2007Q2

REPORT INFORMATION
  Report Type: 
  Country: None (occurrence: None)
  Receive Date: 20070612
  Receipt Date: 20070612
  Transmission Date: 20071010
  Serious: Yes (Other)
  Sender: FDA-Public Use
  Company Number: None

PATIENT
  Age: 62 Year
  Sex: Female
  Weight: 63.5036 kg

DRUGS (1)
  1. ROBITUSSIN GUAIFENESIN 100 MG IN EACH 5 TSP WYETH [Suspect]
     Indication: RESPIRATORY DISORDER
     Dosage: 4 TSP EVERY 4 HOURS PO
     Route: 048
     Dates: start: 20070610, end: 20070611

REACTIONS (3)
  - ABDOMINAL PAIN UPPER [None]
  - PHARMACEUTICAL PRODUCT COMPLAINT [None]
  - SWELLING [None]
